FAERS Safety Report 7105699-7 (Version None)
Quarter: 2010Q4

REPORT INFORMATION
  Report Type: 
  Country: None (occurrence: None)
  Receive Date: 20101110
  Receipt Date: 20101025
  Transmission Date: 20110411
  Serious: Yes (Hospitalization)
  Sender: FDA-Public Use
  Company Number: 2008PV000030

PATIENT
  Age: 56 Year
  Sex: Female

DRUGS (11)
  1. DEPOCYT [Suspect]
     Indication: CENTRAL NERVOUS SYSTEM LYMPHOMA
     Dosage: 50 MG; Q3W; INTH
     Route: 037
     Dates: start: 20070301
  2. DEXAMETHASONE [Concomitant]
  3. ESOMEPRAZOLE [Concomitant]
  4. HYDROCHLOROTHIAZIDE [Concomitant]
  5. TRIAMTEREN [Concomitant]
  6. SIMVASTATIN [Concomitant]
  7. VINCRISTINE [Concomitant]
  8. METHOTREXATE [Concomitant]
  9. IFOSFAMIDE [Concomitant]
  10. VINCRISTINE [Concomitant]
  11. CYCLOPHOSPHAMIDE [Concomitant]

REACTIONS (4)
  - BACK PAIN [None]
  - CAUDA EQUINA SYNDROME [None]
  - GRAND MAL CONVULSION [None]
  - NEUROTOXICITY [None]
